FAERS Safety Report 17764417 (Version 1)
Quarter: 2020Q2

REPORT INFORMATION
  Report Type: Spontaneous
  Country: US (occurrence: US)
  Receive Date: 20200511
  Receipt Date: 20200511
  Transmission Date: 20200714
  Serious: No
  Sender: FDA-Public Use
  Company Number: US-JNJFOC-20200409538

PATIENT
  Age: 30 Year
  Sex: Female

DRUGS (5)
  1. DOXYCYCLINE MONOHYDRATE [Concomitant]
     Active Substance: DOXYCYCLINE
     Indication: CORONAVIRUS INFECTION
  2. TYLENOL [Suspect]
     Active Substance: ACETAMINOPHEN
     Indication: CORONAVIRUS INFECTION
  3. DOXYCYCLINE MONOHYDRATE [Concomitant]
     Active Substance: DOXYCYCLINE
     Indication: CARDIOVASCULAR DISORDER
  4. TYLENOL [Suspect]
     Active Substance: ACETAMINOPHEN
     Indication: CARDIOVASCULAR DISORDER
     Route: 065
  5. DOXYCYCLINE MONOHYDRATE [Concomitant]
     Active Substance: DOXYCYCLINE
     Indication: SKIN INFECTION
     Dosage: 100 MG 3 X DAILY FOR PAST 7 DAYS
     Route: 048

REACTIONS (1)
  - Product use in unapproved indication [Unknown]
